FAERS Safety Report 25947193 (Version 1)
Quarter: 2025Q4

REPORT INFORMATION
  Report Type: Spontaneous
  Country: CA (occurrence: CA)
  Receive Date: 20251022
  Receipt Date: 20251022
  Transmission Date: 20260119
  Serious: Yes (Other)
  Sender: CELLTRION
  Company Number: CA-CELLTRION INC.-2025CA020501

PATIENT

DRUGS (2)
  1. INFLIXIMAB [Suspect]
     Active Substance: INFLIXIMAB
     Indication: Crohn^s disease
     Dosage: 200 MG, EVERY 8 WEEKS (MAINTENANCE)
     Route: 042
     Dates: start: 20250620
  2. INFLIXIMAB [Suspect]
     Active Substance: INFLIXIMAB
     Dosage: 200 MG, EVERY 8 WEEKS (MAINTENANCE)
     Route: 042
     Dates: start: 20250620

REACTIONS (5)
  - Surgery [Unknown]
  - Harvey-Bradshaw index increased [Unknown]
  - Back pain [Unknown]
  - Off label use [Unknown]
  - Intentional dose omission [Unknown]

NARRATIVE: CASE EVENT DATE: 20251014
